FAERS Safety Report 25628962 (Version 1)
Quarter: 2025Q3

REPORT INFORMATION
  Report Type: Spontaneous
  Country: US (occurrence: US)
  Receive Date: 20250731
  Receipt Date: 20250731
  Transmission Date: 20251021
  Serious: No
  Sender: SANOFI AVENTIS
  Company Number: US-SANOFI-02600138

PATIENT
  Age: 36 Year
  Sex: Male

DRUGS (2)
  1. TZIELD [Suspect]
     Active Substance: TEPLIZUMAB-MZWV
     Route: 065
     Dates: start: 20250719, end: 20250722
  2. TZIELD [Suspect]
     Active Substance: TEPLIZUMAB-MZWV
     Route: 065
     Dates: start: 20250723

REACTIONS (2)
  - Lymphocyte count abnormal [Unknown]
  - Pyrexia [Recovered/Resolved]

NARRATIVE: CASE EVENT DATE: 20250722
